FAERS Safety Report 6377644-3 (Version None)
Quarter: 2009Q3

REPORT INFORMATION
  Report Type: 
  Country: None (occurrence: None)
  Receive Date: 20090921
  Receipt Date: 20090917
  Transmission Date: 20100115
  Serious: Yes (Other)
  Sender: FDA-Public Use
  Company Number: GXKR2009DE10336

PATIENT
  Sex: Female

DRUGS (2)
  1. MIRTAZAPINE [Suspect]
     Dosage: 7.5 MG, QD, ORAL
     Route: 048
  2. GABAPENTIN [Concomitant]

REACTIONS (2)
  - ABNORMAL DREAMS [None]
  - SOMNAMBULISM [None]
